FAERS Safety Report 9815692 (Version 1)
Quarter: 2014Q1

REPORT INFORMATION
  Report Type: Spontaneous
  Country: US (occurrence: US)
  Receive Date: 20140114
  Receipt Date: 20140114
  Transmission Date: 20141002
  Serious: Yes (Hospitalization, Other)
  Sender: FDA-Public Use
  Company Number: US-FRI-1000052693

PATIENT
  Age: 72 Year
  Sex: Female

DRUGS (7)
  1. ARMOUR THYROID [Suspect]
     Indication: HYPOTHYROIDISM
     Route: 048
     Dates: start: 2010, end: 2012
  2. ARMOUR THYROID [Suspect]
     Dosage: 60 MG
     Route: 048
     Dates: start: 2012, end: 201305
  3. ARMOUR THYROID [Suspect]
     Indication: HYPOTHYROIDISM
     Dosage: 90 MG
     Route: 048
     Dates: start: 201305, end: 201306
  4. ARMOUR THYROID [Suspect]
     Dosage: 60 MG
     Route: 048
     Dates: start: 201306, end: 201312
  5. ARMOUR THYROID [Suspect]
     Dosage: 30 MG
     Route: 048
     Dates: start: 201312, end: 20140107
  6. MINIPRESS [Concomitant]
     Indication: HYPERTENSION
     Dosage: 4 MG
  7. ATIVAN [Concomitant]
     Indication: ANXIETY
     Dosage: 1 MG

REACTIONS (5)
  - Heart rate increased [Recovered/Resolved]
  - Blood pressure increased [Recovered/Resolved]
  - Tremor [Recovered/Resolved]
  - Anxiety [Recovered/Resolved]
  - Therapeutic response increased [Recovered/Resolved]
